FAERS Safety Report 10743819 (Version 1)
Quarter: 2015Q1

REPORT INFORMATION
  Report Type: Spontaneous
  Country: TR (occurrence: TR)
  Receive Date: 20150128
  Receipt Date: 20150128
  Transmission Date: 20150721
  Serious: Yes (Hospitalization)
  Sender: FDA-Public Use
  Company Number: TR-ASTRAZENECA-2015SE07286

PATIENT
  Sex: Male

DRUGS (4)
  1. UNKNOWM MEDICATION [Concomitant]
     Indication: HYPERTENSION
  2. INSULIN [Concomitant]
     Active Substance: INSULIN NOS
  3. BRILINTA [Suspect]
     Active Substance: TICAGRELOR
     Indication: STENT PLACEMENT
     Route: 048
     Dates: start: 20150115, end: 20150115
  4. UNKNOWM MEDICATION [Concomitant]
     Indication: HYPERLIPIDAEMIA

REACTIONS (4)
  - Nephropathy [Recovering/Resolving]
  - Dermatitis [Recovering/Resolving]
  - Oedema [Recovering/Resolving]
  - White blood cell count increased [Recovering/Resolving]

NARRATIVE: CASE EVENT DATE: 20150115
